FAERS Safety Report 14193318 (Version 2)
Quarter: 2019Q3

REPORT INFORMATION
  Report Type: Report from Study
  Country: DE (occurrence: DE)
  Receive Date: 20171116
  Receipt Date: 20190920
  Transmission Date: 20191004
  Serious: Yes (Other)
  Sender: FDA-Public Use
  Company Number: DE-ROCHE-2020094

PATIENT
  Age: 73 Year
  Sex: Female

DRUGS (2)
  1. XELODA [Suspect]
     Active Substance: CAPECITABINE
     Indication: COLORECTAL CANCER
     Dosage: DAILY DOSE: 1500 MG MILLIGRAM(S) EVERY DAY
     Route: 048
     Dates: start: 20150519, end: 20150715
  2. BEVACIZUMAB. [Suspect]
     Active Substance: BEVACIZUMAB
     Indication: COLORECTAL CANCER METASTATIC
     Dosage: DAILY DOSE: 750 MG MILLIGRAM(S) EVERY WEEK
     Route: 042
     Dates: start: 20150216, end: 20150826

REACTIONS (4)
  - Infection [Not Recovered/Not Resolved]
  - Anaemia of malignant disease [Not Recovered/Not Resolved]
  - Small intestinal obstruction [Not Recovered/Not Resolved]
  - Abdominal pain upper [Not Recovered/Not Resolved]

NARRATIVE: CASE EVENT DATE: 20150710
